FAERS Safety Report 6171312-9 (Version None)
Quarter: 2009Q2

REPORT INFORMATION
  Report Type: 
  Country: None (occurrence: None)
  Receive Date: 20090429
  Receipt Date: 20090420
  Transmission Date: 20091009
  Serious: Yes (Other)
  Sender: FDA-Public Use
  Company Number: PT-ASTRAZENECA-2009AC01164

PATIENT
  Age: 24466 Day
  Sex: Male
  Weight: 75 kg

DRUGS (5)
  1. CASODEX [Suspect]
     Indication: PROSTATE CANCER
     Route: 048
     Dates: start: 20080601, end: 20081024
  2. CASODEX [Suspect]
     Dosage: GENERIC
     Route: 048
     Dates: start: 20081024, end: 20090407
  3. FLUTAMIDE [Concomitant]
     Dosage: 1 UNIT DOSE DAILY
     Route: 048
     Dates: start: 20060926, end: 20081024
  4. TRIPTORELIN PAMOATE [Concomitant]
     Indication: PROSTATE CANCER
     Route: 030
     Dates: start: 20070111, end: 20070724
  5. TRIPTORELIN PAMOATE [Concomitant]
     Route: 030
     Dates: start: 20071126, end: 20080601

REACTIONS (1)
  - DRUG RESISTANCE [None]
